FAERS Safety Report 4726837-7 (Version None)
Quarter: 2005Q3

REPORT INFORMATION
  Report Type: 
  Country: None (occurrence: None)
  Receive Date: 20050726
  Receipt Date: 20050712
  Transmission Date: 20060218
  Serious: Yes (Other)
  Sender: FDA-Public Use
  Company Number: FR-2005-013732

PATIENT
  Age: 50 Year

DRUGS (2)
  1. BETASERON [Suspect]
     Indication: MULTIPLE SCLEROSIS
     Dosage: SUBCUTANEOUS
     Route: 058
     Dates: start: 20021001
  2. LEXOMIL (BROMAZEPAM) [Concomitant]

REACTIONS (1)
  - HYPERTHYROIDISM [None]
